FAERS Safety Report 8538743-0 (Version None)
Quarter: 2012Q3

REPORT INFORMATION
  Report Type: 
  Country: None (occurrence: None)
  Receive Date: 20120713
  Receipt Date: 20120628
  Transmission Date: 20120928
  Serious: Yes (Other)
  Sender: FDA-Public Use
  Company Number: 201207011

PATIENT
  Sex: Male

DRUGS (1)
  1. TESTOSTERONE [Suspect]
     Dosage: DOUBLE DOSE (UNKNOWN DOSE)

REACTIONS (2)
  - OVERDOSE [None]
  - DEEP VEIN THROMBOSIS [None]
